FAERS Safety Report 4684351-1 (Version None)
Quarter: 2005Q2

REPORT INFORMATION
  Report Type: 
  Country: None (occurrence: None)
  Receive Date: 20050531
  Receipt Date: 20041104
  Transmission Date: 20051028
  Serious: Yes (Hospitalization)
  Sender: FDA-Public Use
  Company Number: USA040155794

PATIENT
  Age: 30 Year
  Sex: Female

DRUGS (6)
  1. ZYPREXA [Suspect]
     Indication: BIPOLAR DISORDER
     Dosage: 20 MG/1 DAY
     Dates: start: 19970101, end: 20030801
  2. PROZAC [Suspect]
     Indication: DEPRESSION
     Dates: start: 19970101
  3. DEPAKOTE [Concomitant]
  4. ATIVAN [Concomitant]
  5. LITHIUM [Concomitant]
  6. ZOLOFT [Concomitant]

REACTIONS (5)
  - BLOOD GLUCOSE INCREASED [None]
  - BLOOD PRESSURE INCREASED [None]
  - DEPRESSION [None]
  - SUICIDE ATTEMPT [None]
  - WEIGHT INCREASED [None]
